FAERS Safety Report 11078953 (Version 5)
Quarter: 2015Q3

REPORT INFORMATION
  Report Type: Spontaneous
  Country: GB (occurrence: GB)
  Receive Date: 20150430
  Receipt Date: 20150911
  Transmission Date: 20151125
  Serious: Yes (Other)
  Sender: FDA-Public Use
  Company Number: GB-TEVA-557427ISR

PATIENT
  Age: 41 Year
  Sex: Male
  Weight: 80 kg

DRUGS (3)
  1. SIMVASTATIN. [Suspect]
     Active Substance: SIMVASTATIN
     Route: 065
     Dates: start: 20110503, end: 20111223
  2. SIMVASTATIN. [Suspect]
     Active Substance: SIMVASTATIN
     Indication: BLOOD CHOLESTEROL INCREASED
     Route: 065
     Dates: start: 20111223, end: 20150407
  3. ZOCOR [Suspect]
     Active Substance: SIMVASTATIN
     Indication: BLOOD CHOLESTEROL INCREASED
     Route: 065

REACTIONS (17)
  - Suicidal ideation [Recovering/Resolving]
  - Insomnia [Recovered/Resolved]
  - Amnesia [Recovering/Resolving]
  - Anxiety [Recovering/Resolving]
  - Mental disorder [Recovering/Resolving]
  - Gastrointestinal disorder [Recovering/Resolving]
  - Glucose tolerance impaired [Recovering/Resolving]
  - Self injurious behaviour [Recovering/Resolving]
  - Confusional state [Recovering/Resolving]
  - Carbohydrate intolerance [Recovering/Resolving]
  - Depression [Recovering/Resolving]
  - Tinnitus [Not Recovered/Not Resolved]
  - Arthralgia [Recovering/Resolving]
  - Muscle spasms [Unknown]
  - Disturbance in attention [Unknown]
  - Fatigue [Recovering/Resolving]
  - Dissociation [Recovering/Resolving]

NARRATIVE: CASE EVENT DATE: 201204
